FAERS Safety Report 7849443-4 (Version None)
Quarter: 2011Q4

REPORT INFORMATION
  Report Type: 
  Country: None (occurrence: None)
  Receive Date: 20111026
  Receipt Date: 20111012
  Transmission Date: 20120403
  Serious: Yes (Other)
  Sender: FDA-Public Use
  Company Number: AU-BRISTOL-MYERS SQUIBB COMPANY-16153520

PATIENT
  Sex: Male

DRUGS (2)
  1. ATAZANAVIR [Suspect]
  2. KEFLEX [Concomitant]
     Indication: FURUNCLE

REACTIONS (2)
  - YELLOW SKIN [None]
  - FURUNCLE [None]
